FAERS Safety Report 10530397 (Version 1)
Quarter: 2014Q4

REPORT INFORMATION
  Report Type: Spontaneous
  Country: US (occurrence: None)
  Receive Date: 20141020
  Receipt Date: 20141020
  Transmission Date: 20150528
  Serious: Yes (Disabling, Other)
  Sender: FDA-Public Use
  Company Number: None

PATIENT
  Age: 30 Year
  Sex: Female
  Weight: 63.5 kg

DRUGS (1)
  1. MIRENA [Suspect]
     Active Substance: LEVONORGESTREL
     Indication: CONTRACEPTION
     Dosage: ABOVE DOSE DAILY, UTERINE
     Route: 015
     Dates: start: 20130415, end: 20140617

REACTIONS (12)
  - Abdominal pain [None]
  - Impaired work ability [None]
  - Mobility decreased [None]
  - Quality of life decreased [None]
  - Device dislocation [None]
  - Device lead damage [None]
  - Injury [None]
  - Sexual dysfunction [None]
  - Procedural pain [None]
  - Activities of daily living impaired [None]
  - Exercise lack of [None]
  - Pain [None]

NARRATIVE: CASE EVENT DATE: 20140201
